FAERS Safety Report 5251951-X (Version None)
Quarter: 2007Q1

REPORT INFORMATION
  Report Type: 
  Country: None (occurrence: None)
  Receive Date: 20070223
  Receipt Date: 20070207
  Transmission Date: 20070707
  Serious: Yes (Hospitalization)
  Sender: FDA-Public Use
  Company Number: 2007000247

PATIENT
  Age: 74 Year
  Sex: Male
  Weight: 65.8 kg

DRUGS (4)
  1. ERLOTINIB (TABLET) [Suspect]
     Indication: NON-SMALL CELL LUNG CANCER
     Dosage: 150 MG (QD), ORAL
     Route: 048
     Dates: start: 20060615, end: 20070131
  2. BEVACIZUMAB OR PLACEBO (INJECTION FOR INFUSION) [Suspect]
     Indication: NON-SMALL CELL LUNG CANCER
     Dosage: 1016 MG (Q3W), INTRAVENOUS
     Route: 042
     Dates: start: 20060615, end: 20070118
  3. BEVACIZUMAB OR PLACEBO (INJECTION FOR INFUSION) [Suspect]
  4. BEVACIZUMAB OR PLACEBO (INJECTION FOR INFUSION) [Suspect]

REACTIONS (12)
  - BACTERIAL INFECTION [None]
  - BRONCHOSCOPY ABNORMAL [None]
  - DYSPHAGIA [None]
  - GENERAL PHYSICAL HEALTH DETERIORATION [None]
  - NECROSIS [None]
  - ODYNOPHAGIA [None]
  - OESOPHAGITIS [None]
  - ORAL INTAKE REDUCED [None]
  - SPUTUM PURULENT [None]
  - TRACHEITIS [None]
  - UPPER RESPIRATORY TRACT INFECTION [None]
  - VIRAL INFECTION [None]
